FAERS Safety Report 24800899 (Version 1)
Quarter: 2025Q1

REPORT INFORMATION
  Report Type: Spontaneous
  Country: US (occurrence: US)
  Receive Date: 20250102
  Receipt Date: 20250102
  Transmission Date: 20250409
  Serious: Yes (Other)
  Sender: VERTEX
  Company Number: US-VERTEX PHARMACEUTICALS-2024-019916

PATIENT

DRUGS (1)
  1. TRIKAFTA [Suspect]
     Active Substance: ELEXACAFTOR\IVACAFTOR\TEZACAFTOR
     Indication: Cystic fibrosis
     Route: 048

REACTIONS (5)
  - Transplant [Unknown]
  - Chronic kidney disease [Not Recovered/Not Resolved]
  - Near death experience [Unknown]
  - Diabetes mellitus [Not Recovered/Not Resolved]
  - Immunodeficiency [Not Recovered/Not Resolved]
